FAERS Safety Report 5036650-1 (Version None)
Quarter: 2006Q2

REPORT INFORMATION
  Report Type: 
  Country: None (occurrence: None)
  Receive Date: 20060628
  Receipt Date: 20051229
  Transmission Date: 20061013
  Serious: Yes (Hospitalization)
  Sender: FDA-Public Use
  Company Number: HQWYE161403JAN06

PATIENT
  Sex: Male
  Weight: 59 kg

DRUGS (3)
  1. ENBREL [Suspect]
     Indication: RHEUMATOID ARTHRITIS
     Dosage: 50 MG/WEEK
     Route: 058
     Dates: start: 20050808, end: 20051128
  2. D-PENICILLAMINE [Concomitant]
     Dosage: UNKNOWN
     Route: 048
     Dates: end: 20051201
  3. MEDROL [Concomitant]

REACTIONS (4)
  - COUGH [None]
  - PLEURAL EFFUSION [None]
  - PNEUMONIA [None]
  - PYREXIA [None]
